FAERS Safety Report 4482325-7 (Version None)
Quarter: 2004Q4

REPORT INFORMATION
  Report Type: 
  Country: None (occurrence: None)
  Receive Date: 20041020
  Receipt Date: 20041004
  Transmission Date: 20050328
  Serious: Yes (Hospitalization)
  Sender: FDA-Public Use
  Company Number: USA040977713

PATIENT
  Age: 73 Year
  Sex: Female

DRUGS (5)
  1. FORTEO [Suspect]
     Indication: OSTEOPOROSIS
     Dosage: 20 UG DAY
     Dates: end: 20040801
  2. NEXIUM [Concomitant]
  3. PREMARIN [Concomitant]
  4. ADALAT (NIFEDIPINE PA) [Concomitant]
  5. FOSAMAX [Concomitant]

REACTIONS (7)
  - ARTHRALGIA [None]
  - COSTOCHONDRITIS [None]
  - DIZZINESS [None]
  - HYPERTENSION [None]
  - MYOCARDIAL INFARCTION [None]
  - PAIN IN EXTREMITY [None]
  - PHARMACEUTICAL PRODUCT COMPLAINT [None]
